FAERS Safety Report 23812425 (Version 1)
Quarter: 2024Q2

REPORT INFORMATION
  Report Type: Spontaneous
  Country: FR (occurrence: FR)
  Receive Date: 20240503
  Receipt Date: 20240503
  Transmission Date: 20240716
  Serious: Yes (Other)
  Sender: FDA-Public Use
  Company Number: FR-CPL-004187

PATIENT
  Age: 54 Year
  Sex: Female

DRUGS (1)
  1. ACYCLOVIR [Suspect]
     Active Substance: ACYCLOVIR
     Indication: Antibiotic prophylaxis

REACTIONS (4)
  - Herpes simplex viraemia [Recovering/Resolving]
  - Ophthalmic herpes simplex [Recovering/Resolving]
  - Skin lesion [Unknown]
  - Drug resistance [Unknown]
